FAERS Safety Report 24267413 (Version 2)
Quarter: 2024Q3

REPORT INFORMATION
  Report Type: Spontaneous
  Country: JP (occurrence: JP)
  Receive Date: 20240830
  Receipt Date: 20240911
  Transmission Date: 20241016
  Serious: Yes (Hospitalization, Other)
  Sender: JUBILANT
  Company Number: None

PATIENT
  Age: 23 Year
  Sex: Female
  Weight: 67 kg

DRUGS (6)
  1. PAROXETINE [Interacting]
     Active Substance: PAROXETINE
     Indication: Obsessive-compulsive disorder
     Dosage: UNK MG
     Route: 065
  2. DIAZEPAM [Interacting]
     Active Substance: DIAZEPAM
     Indication: Obsessive-compulsive disorder
     Dosage: UNK,UNK
     Route: 065
  3. DIAZEPAM [Interacting]
     Active Substance: DIAZEPAM
     Dosage: 140 MG,CO-ADMINISTRATION OF 12 GM CAFFEINE WITH 140 MG DIAZEPAM
     Route: 065
  4. CAFFEINE [Interacting]
     Active Substance: CAFFEINE
     Indication: Product used for unknown indication
     Dosage: 12 G, TOTAL (100 MG TABLETS)
     Route: 048
  5. DROSPIRENONE\ETHINYL ESTRADIOL [Interacting]
     Active Substance: DROSPIRENONE\ETHINYL ESTRADIOL
     Indication: Oral contraception
     Dosage: UNK,  UNK, CLINICAL DOSE
     Route: 048
  6. MAGNESIUM OXIDE [Concomitant]
     Active Substance: MAGNESIUM OXIDE
     Indication: Obsessive-compulsive disorder
     Dosage: UNK,UNK
     Route: 065

REACTIONS (12)
  - Toxicity to various agents [Recovered/Resolved]
  - Metabolic acidosis [Recovered/Resolved]
  - Drug clearance decreased [Recovered/Resolved]
  - Rhabdomyolysis [Recovered/Resolved]
  - Hypophosphataemia [Recovered/Resolved]
  - Intentional overdose [Recovered/Resolved]
  - Suicide attempt [Recovered/Resolved]
  - Electrocardiogram QT prolonged [Recovered/Resolved]
  - Ventricular tachycardia [Recovered/Resolved]
  - Hypokalaemia [Recovered/Resolved]
  - Lactic acidosis [Recovered/Resolved]
  - Drug interaction [Recovered/Resolved]
